FAERS Safety Report 9682519 (Version 2)
Quarter: 2013Q4

REPORT INFORMATION
  Report Type: Report from Study
  Country: US (occurrence: US)
  Receive Date: 20131112
  Receipt Date: 20131112
  Transmission Date: 20140711
  Serious: Yes (Hospitalization, Other)
  Sender: FDA-Public Use
  Company Number: US-BRISTOL-MYERS SQUIBB COMPANY-19735562

PATIENT
  Age: 59 Year
  Sex: Male
  Weight: 203.53 kg

DRUGS (3)
  1. IPILIMUMAB [Suspect]
     Indication: TRANSITIONAL CELL CARCINOMA
     Route: 042
     Dates: start: 20131022
  2. CISPLATIN [Suspect]
     Indication: TRANSITIONAL CELL CARCINOMA
     Dosage: 22OCT13
     Route: 042
     Dates: start: 20130910
  3. GEMZAR [Suspect]
     Indication: TRANSITIONAL CELL CARCINOMA
     Dosage: 22SEP13
     Route: 042
     Dates: start: 20130910

REACTIONS (2)
  - Urinary tract infection [Recovered/Resolved]
  - Haemoglobin decreased [Unknown]
